FAERS Safety Report 5078076-0 (Version None)
Quarter: 2006Q3

REPORT INFORMATION
  Report Type: 
  Country: None (occurrence: None)
  Receive Date: 20060811
  Receipt Date: 20060807
  Transmission Date: 20061208
  Serious: Yes (Other)
  Sender: FDA-Public Use
  Company Number: JP-BAYER-200613374GDS

PATIENT
  Age: 78 Year
  Sex: Male

DRUGS (8)
  1. ADALAT [Suspect]
     Indication: DRUG USE FOR UNKNOWN INDICATION
     Route: 065
  2. CARDENALIN [Suspect]
     Indication: HYPERTENSION
     Route: 048
     Dates: end: 20060727
  3. DIOVAN [Suspect]
     Indication: DRUG USE FOR UNKNOWN INDICATION
     Route: 048
  4. ACECOL [Suspect]
     Indication: DRUG USE FOR UNKNOWN INDICATION
     Route: 048
     Dates: end: 20060727
  5. TANATRIL [Suspect]
     Indication: DRUG USE FOR UNKNOWN INDICATION
     Route: 048
  6. ARTIST [Suspect]
     Indication: DRUG USE FOR UNKNOWN INDICATION
  7. METHYLDOPA [Concomitant]
     Indication: DRUG USE FOR UNKNOWN INDICATION
     Route: 065
  8. FUROSEMIDE [Concomitant]
     Indication: DRUG USE FOR UNKNOWN INDICATION
     Route: 065

REACTIONS (2)
  - BLOOD PRESSURE FLUCTUATION [None]
  - BLOOD PRESSURE SYSTOLIC ABNORMAL [None]
